FAERS Safety Report 4842326-3 (Version None)
Quarter: 2005Q4

REPORT INFORMATION
  Report Type: 
  Country: None (occurrence: None)
  Receive Date: 20051129
  Receipt Date: 20051116
  Transmission Date: 20060501
  Serious: Yes (Hospitalization)
  Sender: FDA-Public Use
  Company Number: 2005156381

PATIENT
  Age: 33 Year
  Sex: Female
  Weight: 64 kg

DRUGS (5)
  1. SOLU-CORTEF [Suspect]
     Indication: FOOD ALLERGY
     Dosage: 300 MG (1 D), INTRAVENOUS
     Route: 042
     Dates: start: 20051107, end: 20051108
  2. NEO-MINOPHAGEN C (GLYCYRRHIZIC ACID, AMMONIUM SALT) [Concomitant]
  3. DEXCHLORPHENIRAMINE MALEATE [Concomitant]
  4. ATARAX [Concomitant]
  5. MUCODYNE (CARBOCISTEINE) [Concomitant]

REACTIONS (6)
  - DYSPHONIA [None]
  - DYSPNOEA [None]
  - GENERALISED ERYTHEMA [None]
  - LARYNGEAL OEDEMA [None]
  - SHOCK [None]
  - WHEEZING [None]
